FAERS Safety Report 20698728 (Version 2)
Quarter: 2022Q2

REPORT INFORMATION
  Report Type: Spontaneous
  Country: IT (occurrence: IT)
  Receive Date: 20220412
  Receipt Date: 20220616
  Transmission Date: 20220720
  Serious: Yes (Other)
  Sender: FDA-Public Use
  Company Number: IT-NOVARTISPH-NVSC2022IT081904

PATIENT
  Age: 49 Year
  Sex: Female

DRUGS (1)
  1. SECUKINUMAB [Suspect]
     Active Substance: SECUKINUMAB
     Indication: Behcet^s syndrome
     Dosage: UNK
     Route: 065
     Dates: start: 2018

REACTIONS (3)
  - Suicidal ideation [Recovered/Resolved]
  - Mixed anxiety and depressive disorder [Recovered/Resolved]
  - Product use in unapproved indication [Unknown]
